FAERS Safety Report 9189149 (Version 2)
Quarter: 2013Q2

REPORT INFORMATION
  Report Type: Spontaneous
  Country: JP (occurrence: JP)
  Receive Date: 20130326
  Receipt Date: 20130509
  Transmission Date: 20140414
  Serious: Yes (Hospitalization)
  Sender: FDA-Public Use
  Company Number: JP-009507513-1303JPN011924

PATIENT
  Age: 58 Year
  Sex: Female
  Weight: 52 kg

DRUGS (5)
  1. PEGINTRON [Suspect]
     Indication: CHRONIC HEPATITIS C
     Dosage: 1.5 MICROGRAM PER KILOGRAM, QW
     Route: 058
     Dates: start: 20130115, end: 20130117
  2. REBETOL [Suspect]
     Indication: CHRONIC HEPATITIS C
     Dosage: 600 MG, QD
     Route: 048
     Dates: start: 20130115, end: 20130117
  3. TELAVIC [Suspect]
     Indication: CHRONIC HEPATITIS C
     Dosage: 2250 MG, QD
     Route: 048
     Dates: start: 20130115, end: 20130117
  4. URSO [Concomitant]
     Indication: CHRONIC HEPATITIS C
     Dosage: DAILY DOSE UNKNOWN, FORMULATION POR
     Route: 048
  5. ZYLORIC [Concomitant]
     Dosage: 100 MG, QD, FORMULATION POR
     Route: 048
     Dates: start: 20130117

REACTIONS (2)
  - Renal impairment [Recovering/Resolving]
  - Hyperuricaemia [Recovering/Resolving]
